FAERS Safety Report 8487525-7 (Version None)
Quarter: 2012Q3

REPORT INFORMATION
  Report Type: 
  Country: None (occurrence: None)
  Receive Date: 20120705
  Receipt Date: 20120629
  Transmission Date: 20120928
  Serious: Yes (Death, Other)
  Sender: FDA-Public Use
  Company Number: JP-BAYER-2012-065581

PATIENT
  Age: 70 Year
  Sex: Female
  Weight: 30 kg

DRUGS (3)
  1. NEXAVAR [Suspect]
     Dosage: 200 MG, BID
     Route: 048
  2. NEXAVAR [Suspect]
     Indication: ANGIOSARCOMA RECURRENT
     Dosage: 400 MG, BID
     Route: 048
  3. NEXAVAR [Suspect]
     Dosage: 200 MG, QD
     Route: 048

REACTIONS (4)
  - LIVER DISORDER [None]
  - NAUSEA [None]
  - FATIGUE [None]
  - METASTASES TO LUNG [None]
